FAERS Safety Report 17794995 (Version 1)
Quarter: 2020Q2

REPORT INFORMATION
  Report Type: Spontaneous
  Country: US (occurrence: US)
  Receive Date: 20200515
  Receipt Date: 20200515
  Transmission Date: 20200714
  Serious: Yes (Hospitalization)
  Sender: FDA-Public Use
  Company Number: US-TEVA-2020-US-1234117

PATIENT
  Age: 57 Year
  Sex: Female

DRUGS (5)
  1. MORPHINE SULFATE. [Suspect]
     Active Substance: MORPHINE SULFATE
     Indication: CANCER PAIN
     Dosage: 360 MILLIGRAM DAILY;
     Route: 048
  2. MORPHINE SULFATE. [Suspect]
     Active Substance: MORPHINE SULFATE
     Dosage: IMMEDIATE RELEASE 30-45MG EVERY 3 HOURS AS NEEDED
     Route: 048
  3. HYDROMORPHONE [Suspect]
     Active Substance: HYDROMORPHONE
     Route: 051
  4. FENTANYL. [Suspect]
     Active Substance: FENTANYL
     Dosage: AT THE TIME OF TDD IMPLANTATION
     Route: 051
  5. FENTANYL. [Suspect]
     Active Substance: FENTANYL
     Indication: CANCER PAIN
     Dosage: STARTED AT UNKNOWN DOSE
     Route: 051

REACTIONS (2)
  - Toxic encephalopathy [Recovering/Resolving]
  - Constipation [Unknown]
